FAERS Safety Report 21368583 (Version 7)
Quarter: 2024Q1

REPORT INFORMATION
  Report Type: Report from Study
  Country: GB (occurrence: GB)
  Receive Date: 20220923
  Receipt Date: 20240127
  Transmission Date: 20240410
  Serious: Yes (Hospitalization, Other)
  Sender: FDA-Public Use
  Company Number: GB-ABBVIE-4129082

PATIENT
  Age: 65 Year
  Sex: Male

DRUGS (22)
  1. CARBIDOPA\LEVODOPA [Suspect]
     Active Substance: CARBIDOPA\LEVODOPA
     Indication: Parkinson^s disease
     Dosage: REDUCTION IN NIGHT TIME DOSES
     Route: 050
     Dates: start: 2022
  2. CARBIDOPA\LEVODOPA [Suspect]
     Active Substance: CARBIDOPA\LEVODOPA
     Dosage: 20MGS/5MGS
     Route: 050
     Dates: start: 2023
  3. CARBIDOPA\LEVODOPA [Suspect]
     Active Substance: CARBIDOPA\LEVODOPA
     Dosage: DAY PUMP- MD- 4.2MLS, CR- 6.5MLS, ED- 3.9MLS. NIGHT PUMP- MD- 4.2MLS, CR-4.0MLS, ED- 3.2MLS
     Route: 050
     Dates: end: 202210
  4. CARBIDOPA\LEVODOPA [Suspect]
     Active Substance: CARBIDOPA\LEVODOPA
     Dosage: MD: 4.2MLS  CR: 4.2MLS ED: 3.2MLS, 20MGS/5MGS?DISCONTINUED IN 2022
     Route: 050
     Dates: start: 202210
  5. CARBIDOPA\LEVODOPA [Suspect]
     Active Substance: CARBIDOPA\LEVODOPA
     Dosage: REDUCTION IN NIGHT TIME DOSES
     Route: 050
  6. CARBIDOPA\LEVODOPA [Suspect]
     Active Substance: CARBIDOPA\LEVODOPA
     Dosage: MD: 4.2MLS, ED:3.9MLS, CR: 6.3MLS, 20MGS/5MGS
     Route: 050
     Dates: end: 2023
  7. CARBIDOPA\LEVODOPA [Suspect]
     Active Substance: CARBIDOPA\LEVODOPA
     Dosage: REDUCTION IN NIGHT TIME DOSES
     Route: 050
     Dates: start: 2023
  8. PREGABALIN [Concomitant]
     Active Substance: PREGABALIN
     Indication: Neuralgia
     Route: 048
  9. PREGABALIN [Concomitant]
     Active Substance: PREGABALIN
     Indication: Neuralgia
  10. PREGABALIN [Concomitant]
     Active Substance: PREGABALIN
     Indication: Neuralgia
  11. Paracetamolo (Paracetamol) [Concomitant]
     Indication: Pain
     Route: 048
  12. MIRTAZAPINE [Suspect]
     Active Substance: MIRTAZAPINE
     Indication: Affective disorder
     Route: 065
  13. Rivastigmine patch 5 [Concomitant]
     Indication: Parkinson^s disease
     Dosage: 9.5 MG
  14. Rivastigmine patch 5 [Concomitant]
     Indication: Parkinson^s disease
     Dosage: 4.6 MILLIGRAM
     Route: 062
  15. MEMANTINE [Concomitant]
     Active Substance: MEMANTINE
     Indication: Product used for unknown indication
     Route: 048
  16. MEMANTINE [Concomitant]
     Active Substance: MEMANTINE
     Indication: Product used for unknown indication
     Route: 048
  17. QUETIAPINE [Concomitant]
     Active Substance: QUETIAPINE
     Indication: Psychotic disorder
     Route: 048
  18. QUETIAPINE [Concomitant]
     Active Substance: QUETIAPINE
     Indication: Psychotic disorder
     Route: 048
  19. BISACODYL [Concomitant]
     Active Substance: BISACODYL
     Indication: Product used for unknown indication
  20. MELATONIN [Concomitant]
     Active Substance: MELATONIN
     Indication: Product used for unknown indication
  21. INSULIN NOS [Concomitant]
     Active Substance: INSULIN NOS
     Indication: Product used for unknown indication
  22. LANSOPRAZOLE [Concomitant]
     Active Substance: LANSOPRAZOLE
     Indication: Product used for unknown indication

REACTIONS (43)
  - Knee arthroplasty [Unknown]
  - Memory impairment [Unknown]
  - Balance disorder [Unknown]
  - Dyskinesia [Not Recovered/Not Resolved]
  - Cognitive disorder [Not Recovered/Not Resolved]
  - Incontinence [Unknown]
  - Asthenia [Unknown]
  - Abnormal dreams [Unknown]
  - General physical health deterioration [Not Recovered/Not Resolved]
  - Mobility decreased [Not Recovered/Not Resolved]
  - Dystonia [Not Recovered/Not Resolved]
  - Decubitus ulcer [Unknown]
  - Hip fracture [Unknown]
  - Confusional state [Recovering/Resolving]
  - Device dislocation [Not Recovered/Not Resolved]
  - Constipation [Not Recovered/Not Resolved]
  - Extra dose administered [Not Recovered/Not Resolved]
  - Fall [Not Recovered/Not Resolved]
  - Poor quality sleep [Unknown]
  - Weight decreased [Not Recovered/Not Resolved]
  - Therapeutic response shortened [Unknown]
  - Parkinson^s disease [Not Recovered/Not Resolved]
  - Device kink [Recovered/Resolved]
  - Hallucination [Recovering/Resolving]
  - Device alarm issue [Not Recovered/Not Resolved]
  - Device occlusion [Not Recovered/Not Resolved]
  - Paranoia [Not Recovered/Not Resolved]
  - On and off phenomenon [Recovering/Resolving]
  - Intentional medical device removal by patient [Not Recovered/Not Resolved]
  - Nightmare [Unknown]
  - Aggression [Not Recovered/Not Resolved]
  - Agitation [Not Recovered/Not Resolved]
  - Device occlusion [Recovered/Resolved]
  - Neuralgia [Not Recovered/Not Resolved]
  - Muscle rigidity [Not Recovered/Not Resolved]
  - Tremor [Not Recovered/Not Resolved]
  - Mental impairment [Not Recovered/Not Resolved]
  - Muscle spasms [Not Recovered/Not Resolved]
  - Anxiety [Not Recovered/Not Resolved]
  - Night sweats [Unknown]
  - Speech disorder [Not Recovered/Not Resolved]
  - Musculoskeletal stiffness [Unknown]
  - Diabetes mellitus [Unknown]

NARRATIVE: CASE EVENT DATE: 20210101
